FAERS Safety Report 10144829 (Version 1)
Quarter: 2014Q2

REPORT INFORMATION
  Report Type: Spontaneous
  Country: US (occurrence: US)
  Receive Date: 20140430
  Receipt Date: 20140430
  Transmission Date: 20141212
  Serious: No
  Sender: FDA-Public Use
  Company Number: US-SA-2014SA009087

PATIENT
  Age: 34 Year
  Sex: Female
  Weight: 60.32 kg

DRUGS (3)
  1. LOVENOX [Suspect]
     Indication: FACTOR V LEIDEN MUTATION
     Route: 058
     Dates: start: 20140115, end: 20140121
  2. LOVENOX [Suspect]
     Indication: GENE MUTATION
     Route: 058
     Dates: start: 20140115, end: 20140121
  3. PROMETHAZINE [Concomitant]
     Dosage: DOSE: 1 - 2 TAB
     Route: 048
     Dates: start: 20131202

REACTIONS (2)
  - Rash papular [Recovered/Resolved]
  - Exposure during pregnancy [Unknown]
